FAERS Safety Report 4785072-7 (Version None)
Quarter: 2005Q3

REPORT INFORMATION
  Report Type: 
  Country: None (occurrence: None)
  Receive Date: 20050930
  Receipt Date: 20050919
  Transmission Date: 20060218
  Serious: Yes (Other)
  Sender: FDA-Public Use
  Company Number: IN-JNJFOC-20040907823

PATIENT
  Age: 60 Year
  Sex: Female

DRUGS (1)
  1. ULTRACET [Suspect]
     Dosage: 37.5MG + 325MG.
     Route: 048

REACTIONS (7)
  - ABDOMINAL PAIN [None]
  - DYSPEPSIA [None]
  - HEADACHE [None]
  - LOSS OF CONSCIOUSNESS [None]
  - NAUSEA [None]
  - STOMACH DISCOMFORT [None]
  - VOMITING [None]
